FAERS Safety Report 22080496 (Version 1)
Quarter: 2023Q1

REPORT INFORMATION
  Report Type: Spontaneous
  Country: US (occurrence: None)
  Receive Date: 20230309
  Receipt Date: 20230309
  Transmission Date: 20230417
  Serious: Yes (Hospitalization)
  Sender: FDA-Public Use
  Company Number: None

PATIENT
  Sex: Male

DRUGS (9)
  1. MEKTOVI [Suspect]
     Active Substance: BINIMETINIB
     Indication: Metastases to central nervous system
     Dosage: 45MG TWICE DAILY ORAL
     Route: 048
     Dates: start: 202210
  2. MEKTOVI [Suspect]
     Active Substance: BINIMETINIB
     Indication: Metastases to lung
  3. MEKTOVI [Suspect]
     Active Substance: BINIMETINIB
     Indication: Malignant melanoma
  4. BRAFTOVI [Suspect]
     Active Substance: ENCORAFENIB
     Indication: Metastases to central nervous system
     Dosage: 450 MG DAILY ORAL
     Route: 048
     Dates: start: 202210
  5. BRAFTOVI [Suspect]
     Active Substance: ENCORAFENIB
     Indication: Metastases to lung
  6. BRAFTOVI [Suspect]
     Active Substance: ENCORAFENIB
     Indication: Malignant melanoma
  7. LYNPARZA [Suspect]
     Active Substance: OLAPARIB
  8. ZELBORAF [Suspect]
     Active Substance: VEMURAFENIB
  9. COTELLIC [Suspect]
     Active Substance: COBIMETINIB

REACTIONS (1)
  - Renal failure [None]
